FAERS Safety Report 17763612 (Version 4)
Quarter: 2020Q2

REPORT INFORMATION
  Report Type: Spontaneous
  Country: RO (occurrence: RO)
  Receive Date: 20200509
  Receipt Date: 20200528
  Transmission Date: 20200714
  Serious: Yes (Hospitalization, Disabling, Other)
  Sender: FDA-Public Use
  Company Number: RO-MYLANLABS-2020M1045900

PATIENT
  Age: 61 Year
  Sex: Male

DRUGS (17)
  1. MEMANTINE. [Suspect]
     Active Substance: MEMANTINE
     Indication: DEMENTIA
  2. ARIPIPRAZOLE. [Suspect]
     Active Substance: ARIPIPRAZOLE
     Indication: DEPRESSION
     Dosage: 7 MILLIGRAM, QD
     Route: 048
     Dates: start: 20191107, end: 20191112
  3. DONEPEZIL. [Suspect]
     Active Substance: DONEPEZIL
     Indication: DEPRESSION
     Dosage: 10 MG, QD
     Route: 065
     Dates: start: 2018
  4. DONEPEZIL. [Suspect]
     Active Substance: DONEPEZIL
     Indication: FRONTOTEMPORAL DEMENTIA
  5. TRAZODONE [Concomitant]
     Active Substance: TRAZODONE HYDROCHLORIDE
     Indication: DEMENTIA
     Dosage: 10 MILLIGRAM, QD
     Route: 065
  6. CLONAZEPAM. [Suspect]
     Active Substance: CLONAZEPAM
     Indication: MAJOR DEPRESSION
     Dosage: 1 MILLIGRAM, QD
     Route: 065
  7. ARIPIPRAZOLE. [Suspect]
     Active Substance: ARIPIPRAZOLE
     Indication: DISEASE PROGRESSION
     Dosage: 1 MG/ML
     Route: 048
     Dates: start: 2019
  8. MEMANTINE. [Suspect]
     Active Substance: MEMANTINE
     Indication: FRONTOTEMPORAL DEMENTIA
     Dosage: 20 MG, QD
     Route: 065
     Dates: start: 2018
  9. MEMANTINE. [Suspect]
     Active Substance: MEMANTINE
     Indication: DEPRESSION
  10. MIRTAZAPINE. [Suspect]
     Active Substance: MIRTAZAPINE
     Indication: DEPRESSION
     Dosage: 15 MG, QD
     Route: 065
     Dates: start: 2018
  11. TRAZODONE [Concomitant]
     Active Substance: TRAZODONE HYDROCHLORIDE
     Dosage: 100 UNK
     Dates: start: 2018
  12. ARIPIPRAZOLE. [Suspect]
     Active Substance: ARIPIPRAZOLE
     Indication: DEPRESSION
  13. ARIPIPRAZOLE. [Suspect]
     Active Substance: ARIPIPRAZOLE
     Indication: DISEASE PROGRESSION
     Dosage: 10 MG, QD
     Route: 048
     Dates: end: 20191107
  14. DONEPEZIL. [Suspect]
     Active Substance: DONEPEZIL
     Indication: DEMENTIA
  15. SODIUM VALPROATE [Suspect]
     Active Substance: VALPROATE SODIUM
     Indication: DEPRESSION
     Dosage: 1000 MG, QD
     Route: 065
     Dates: start: 2018
  16. ESCITALOPRAM [Suspect]
     Active Substance: ESCITALOPRAM OXALATE
     Indication: MAJOR DEPRESSION
     Dosage: 10 MILLIGRAM, QD
     Route: 065
  17. SODIUM VALPROATE [Suspect]
     Active Substance: VALPROATE SODIUM
     Dosage: UNK

REACTIONS (8)
  - Tremor [Recovered/Resolved]
  - Drug ineffective [Recovering/Resolving]
  - Neuroleptic malignant syndrome [Recovered/Resolved]
  - Cogwheel rigidity [Recovered/Resolved]
  - Condition aggravated [Recovering/Resolving]
  - Hyperhidrosis [Recovered/Resolved]
  - Pyrexia [Recovered/Resolved]
  - Dementia [Recovering/Resolving]

NARRATIVE: CASE EVENT DATE: 2019
